FAERS Safety Report 8304333-8 (Version None)
Quarter: 2012Q2

REPORT INFORMATION
  Report Type: 
  Country: None (occurrence: None)
  Receive Date: 20120423
  Receipt Date: 20120423
  Transmission Date: 20120825
  Serious: Yes (Death)
  Sender: FDA-Public Use
  Company Number: None

PATIENT
  Age: 60 Year
  Sex: Male
  Weight: 63.2 kg

DRUGS (10)
  1. LACTULOSE [Concomitant]
     Route: 048
  2. VITAMIN K TAB [Concomitant]
     Route: 042
  3. CIPROFLOXACIN [Concomitant]
     Route: 048
  4. FENTANYL [Concomitant]
     Route: 042
  5. SODIUM POLYSTYRENE SUSPENSION [Concomitant]
     Route: 048
  6. PROFILNINE [Suspect]
     Indication: HAEMATOMA
     Dosage: 2000 IU
     Route: 042
     Dates: start: 20111230, end: 20111230
  7. RIFAXIMIN [Concomitant]
     Route: 048
  8. TENOFOVIR [Concomitant]
     Route: 048
  9. VITAMIN K TAB [Concomitant]
     Route: 058
  10. PANTOPRAZOLE [Concomitant]
     Route: 042

REACTIONS (6)
  - PULSE ABSENT [None]
  - OXYGEN SATURATION DECREASED [None]
  - SNORING [None]
  - UNRESPONSIVE TO STIMULI [None]
  - BRADYCARDIA [None]
  - PULSE ABNORMAL [None]
